FAERS Safety Report 6484016-X (Version None)
Quarter: 2009Q4

REPORT INFORMATION
  Report Type: 
  Country: None (occurrence: None)
  Receive Date: 20091123
  Receipt Date: 20090918
  Transmission Date: 20100525
  Serious: No
  Sender: FDA-Public Use
  Company Number: 8052444

PATIENT
  Age: 28 Year
  Sex: Female

DRUGS (1)
  1. CIMZIA [Suspect]
     Indication: CROHN'S DISEASE
     Dosage: 200 MG 1/2W SC
     Route: 058
     Dates: start: 20090217, end: 20090901

REACTIONS (1)
  - PREGNANCY [None]
